FAERS Safety Report 7260486-4 (Version None)
Quarter: 2011Q1

REPORT INFORMATION
  Report Type: 
  Country: None (occurrence: None)
  Receive Date: 20110130
  Receipt Date: 20101119
  Transmission Date: 20110831
  Serious: No
  Sender: FDA-Public Use
  Company Number: US-ABBOTT-10P-163-0686959-00

PATIENT
  Age: 62 Year
  Sex: Female

DRUGS (3)
  1. PROCHLORPERAZINE [Concomitant]
     Indication: NAUSEA
  2. HUMIRA [Suspect]
     Indication: CROHN'S DISEASE
     Dosage: LOADING DOSE
     Dates: start: 20101101
  3. PROCHLORPERAZINE [Concomitant]
     Indication: VOMITING

REACTIONS (1)
  - INJECTION SITE HAEMATOMA [None]
